FAERS Safety Report 7840830-7 (Version None)
Quarter: 2011Q3

REPORT INFORMATION
  Report Type: 
  Country: None (occurrence: None)
  Receive Date: 20110901
  Receipt Date: 20101012
  Transmission Date: 20111222
  Serious: Yes (Disabling, Other)
  Sender: FDA-Public Use
  Company Number: 251393USA

PATIENT
  Sex: Female

DRUGS (3)
  1. METOCLOPRAMIDE [Suspect]
     Indication: ABDOMINAL DISTENSION
     Dates: start: 20020101, end: 20090601
  2. METOCLOPRAMIDE [Suspect]
     Indication: DYSPEPSIA
     Dates: start: 20020101, end: 20090601
  3. METOCLOPRAMIDE [Suspect]
     Indication: GASTROOESOPHAGEAL REFLUX DISEASE
     Dates: start: 20020101, end: 20090601

REACTIONS (1)
  - TARDIVE DYSKINESIA [None]
